FAERS Safety Report 12653514 (Version 2)
Quarter: 2025Q1

REPORT INFORMATION
  Report Type: Report from Study
  Country: US (occurrence: US)
  Receive Date: 20160815
  Receipt Date: 20250102
  Transmission Date: 20250408
  Serious: Yes (Other)
  Sender: MERCK
  Company Number: US-009507513-1607USA008683

PATIENT
  Sex: Female

DRUGS (1)
  1. JANUVIA [Suspect]
     Active Substance: SITAGLIPTIN PHOSPHATE
     Dosage: 50 MG TWICE A DAY (BID)
     Route: 048

REACTIONS (2)
  - Dementia [Unknown]
  - Inappropriate schedule of product administration [Unknown]
